FAERS Safety Report 14217500 (Version 1)
Quarter: 2017Q4

REPORT INFORMATION
  Report Type: Report from Study
  Country: US (occurrence: US)
  Receive Date: 20171123
  Receipt Date: 20171123
  Transmission Date: 20180321
  Serious: No
  Sender: FDA-Public Use
  Company Number: US-AMGEN-USASL2017175078

PATIENT
  Age: 59 Year
  Sex: Female

DRUGS (3)
  1. TRAMADOL. [Concomitant]
     Active Substance: TRAMADOL
     Dosage: UNK
  2. TRAMADOL. [Concomitant]
     Active Substance: TRAMADOL
     Dosage: UNK
  3. ENBREL [Suspect]
     Active Substance: ETANERCEPT
     Indication: RHEUMATOID ARTHRITIS
     Dosage: 50 MG, QWK
     Route: 065

REACTIONS (2)
  - Pain in extremity [Unknown]
  - Limb prosthesis user [Unknown]
